FAERS Safety Report 9308942 (Version 2)
Quarter: 2013Q2

REPORT INFORMATION
  Report Type: Spontaneous
  Country: US (occurrence: US)
  Receive Date: 20130524
  Receipt Date: 20130603
  Transmission Date: 20140414
  Serious: Yes (Life-Threatening, Other)
  Sender: FDA-Public Use
  Company Number: US-US-EMD SERONO, INC.-7086325

PATIENT
  Age: 52 Year
  Sex: Female

DRUGS (2)
  1. REBIF [Suspect]
     Indication: PRODUCT USED FOR UNKNOWN INDICATION
     Route: 058
     Dates: start: 20040308
  2. ALEVE [Concomitant]
     Indication: PREMEDICATION

REACTIONS (4)
  - Respiratory arrest [Recovered/Resolved]
  - Memory impairment [Unknown]
  - Dizziness [Recovering/Resolving]
  - Influenza like illness [Unknown]
